FAERS Safety Report 15049445 (Version 1)
Quarter: 2018Q2

REPORT INFORMATION
  Report Type: Spontaneous
  Country: US (occurrence: US)
  Receive Date: 20180622
  Receipt Date: 20180622
  Transmission Date: 20180711
  Serious: No
  Sender: FDA-Public Use
  Company Number: US-ASTRAZENECA-2018SE69026

PATIENT
  Age: 34855 Day
  Sex: Female
  Weight: 79.4 kg

DRUGS (2)
  1. LEVOTHYROXINE. [Concomitant]
     Active Substance: LEVOTHYROXINE
     Indication: THYROID DISORDER
  2. SYMBICORT [Suspect]
     Active Substance: BUDESONIDE\FORMOTEROL FUMARATE DIHYDRATE
     Indication: ASTHMA
     Dosage: 80/4.5 MCG TWO TIMES A DAY
     Route: 055
     Dates: start: 2017

REACTIONS (5)
  - Panic disorder [Unknown]
  - Tremor [Unknown]
  - Extra dose administered [Unknown]
  - Intentional device misuse [Unknown]
  - Illness anxiety disorder [Unknown]

NARRATIVE: CASE EVENT DATE: 20180523
